FAERS Safety Report 22393467 (Version 6)
Quarter: 2023Q4

REPORT INFORMATION
  Report Type: Spontaneous
  Country: US (occurrence: US)
  Receive Date: 20230601
  Receipt Date: 20231016
  Transmission Date: 20240109
  Serious: Yes (Other)
  Sender: FDA-Public Use
  Company Number: US-INCYTE CORPORATION-2023IN005404

PATIENT

DRUGS (4)
  1. JAKAFI [Suspect]
     Active Substance: RUXOLITINIB
     Indication: Polycythaemia vera
     Dosage: 15 MILLIGRAM, BID
     Route: 048
     Dates: start: 202305
  2. JAKAFI [Suspect]
     Active Substance: RUXOLITINIB
     Dosage: 5 MILLIGRAM, BID
     Route: 048
     Dates: start: 202305
  3. JAKAFI [Suspect]
     Active Substance: RUXOLITINIB
     Dosage: 10 MILLIGRAM, BID
     Route: 048
     Dates: start: 202307
  4. JAKAFI [Suspect]
     Active Substance: RUXOLITINIB
     Dosage: 5 UNK
     Route: 065

REACTIONS (9)
  - Retinal exudates [Unknown]
  - Haematological neoplasm [Unknown]
  - Pain [Unknown]
  - Fatigue [Recovering/Resolving]
  - Decreased activity [Unknown]
  - Asthenia [Unknown]
  - Full blood count decreased [Unknown]
  - Inflammation [Unknown]
  - Hypertension [Unknown]
